FAERS Safety Report 10248778 (Version 4)
Quarter: 2014Q4

REPORT INFORMATION
  Report Type: Spontaneous
  Country: FR (occurrence: None)
  Receive Date: 20140618
  Receipt Date: 20141121
  Transmission Date: 20150528
  Serious: Yes (Congenital Anomaly)
  Sender: FDA-Public Use
  Company Number: B1000607A

PATIENT
  Sex: Male

DRUGS (2)
  1. DEROXAT (PAROXETINE HYDROCHLORIDE) UNKNOWN (LOT # UNKNOWN) [Suspect]
     Active Substance: PAROXETINE HYDROCHLORIDE
     Indication: PANIC ATTACK
     Route: 064
     Dates: start: 2006, end: 20061010
  2. XANAX [Suspect]
     Active Substance: ALPRAZOLAM
     Route: 064

REACTIONS (11)
  - Maternal drugs affecting foetus [None]
  - Hypotonia [None]
  - Cyanosis [None]
  - Ventricular septal defect [None]
  - Foetal exposure during pregnancy [None]
  - Eating disorder [None]
  - Trisomy 21 [None]
  - Rhinitis [None]
  - Sleep disorder [None]
  - Pulmonary arterial hypertension [None]
  - Sleep apnoea syndrome [None]

NARRATIVE: CASE EVENT DATE: 2006
